FAERS Safety Report 8219217-3 (Version None)
Quarter: 2012Q1

REPORT INFORMATION
  Report Type: 
  Country: None (occurrence: None)
  Receive Date: 20120319
  Receipt Date: 20120314
  Transmission Date: 20120608
  Serious: Yes (Death, Other)
  Sender: FDA-Public Use
  Company Number: PL-PFIZER INC-2012066184

PATIENT
  Age: 72 Year
  Sex: Female

DRUGS (4)
  1. OXYCONTIN [Suspect]
     Indication: PAIN
     Dosage: 40 MG, 1X/DAY
     Route: 048
     Dates: start: 20111206
  2. APAP TAB [Suspect]
     Indication: PAIN
     Dosage: 1500 MG, 1X/DAY
     Route: 048
     Dates: start: 20111001
  3. MORPHINE SULFATE [Suspect]
     Indication: PAIN
     Dosage: 40 MG, 1X/DAY
     Route: 048
     Dates: start: 20111206
  4. DICLOFENAC SODIUM [Suspect]
     Indication: PAIN
     Dosage: 150 MG, 1X/DAY
     Route: 048
     Dates: start: 20111212

REACTIONS (2)
  - BREAST CANCER [None]
  - DISEASE PROGRESSION [None]
